FAERS Safety Report 5857147-2 (Version None)
Quarter: 2008Q3

REPORT INFORMATION
  Report Type: 
  Country: None (occurrence: None)
  Receive Date: 20080821
  Receipt Date: 20080808
  Transmission Date: 20090109
  Serious: Yes (Hospitalization)
  Sender: FDA-Public Use
  Company Number: IPS_01207_2008

PATIENT
  Sex: Female

DRUGS (1)
  1. APO-GO (APO-GO AMPOULES - APOMORPHINE HYDROCHLORIDE) (NOT SPECIFIED) [Suspect]
     Indication: PARKINSON'S DISEASE
     Dosage: DF SUBCUTANEOUS
     Route: 058

REACTIONS (2)
  - INFUSION SITE NECROSIS [None]
  - RENAL DISORDER [None]
